FAERS Safety Report 25846272 (Version 3)
Quarter: 2025Q4

REPORT INFORMATION
  Report Type: Spontaneous
  Country: US (occurrence: US)
  Receive Date: 20250925
  Receipt Date: 20251118
  Transmission Date: 20260117
  Serious: No
  Sender: SANOFI AVENTIS
  Company Number: US-SA-2025SA285841

PATIENT
  Age: 60 Year
  Sex: Male

DRUGS (1)
  1. DUPIXENT [Suspect]
     Active Substance: DUPILUMAB
     Indication: Asthma
     Dosage: 300 MG, QOW
     Route: 058
     Dates: start: 202508

REACTIONS (10)
  - Dry mouth [Recovering/Resolving]
  - Dyspnoea [Recovered/Resolved]
  - Cough [Recovering/Resolving]
  - Dysuria [Recovered/Resolved]
  - Ocular discomfort [Not Recovered/Not Resolved]
  - Eye discharge [Not Recovered/Not Resolved]
  - Oedema [Recovered/Resolved]
  - Depression [Not Recovered/Not Resolved]
  - Dry eye [Not Recovered/Not Resolved]
  - Incorrect dose administered [Unknown]

NARRATIVE: CASE EVENT DATE: 20250101
